FAERS Safety Report 5264274-X (Version None)
Quarter: 2007Q1

REPORT INFORMATION
  Report Type: 
  Country: None (occurrence: None)
  Receive Date: 20070309
  Receipt Date: 20070223
  Transmission Date: 20070707
  Serious: Yes (Other)
  Sender: FDA-Public Use
  Company Number: 237123

PATIENT
  Age: 43 Year
  Sex: Female

DRUGS (6)
  1. XOLAIR [Suspect]
     Indication: ASTHMA
     Dosage: 300 MG, Q2W, SUBCUTANEOUS
     Route: 058
  2. ADVAIR DISKUS 100/50 [Concomitant]
  3. LEVOTHYROXINE SODIUM [Concomitant]
  4. WELLBUTRIN XL [Concomitant]
  5. TRAZODONE HCL [Concomitant]
  6. CLONAZEPAM [Concomitant]

REACTIONS (5)
  - ACTIVITIES OF DAILY LIVING IMPAIRED [None]
  - DIZZINESS [None]
  - FATIGUE [None]
  - HEADACHE [None]
  - NAUSEA [None]
